FAERS Safety Report 16914323 (Version 1)
Quarter: 2019Q4

REPORT INFORMATION
  Report Type: Spontaneous
  Country: US (occurrence: US)
  Receive Date: 20191014
  Receipt Date: 20191014
  Transmission Date: 20200122
  Serious: No
  Sender: FDA-Public Use
  Company Number: US-BAYER-2019-184740

PATIENT
  Age: 63 Year
  Sex: Male

DRUGS (3)
  1. LAXATIVE [BISACODYL] [Concomitant]
     Active Substance: BISACODYL
     Dosage: UNK
     Dates: start: 20191009
  2. CLARITIN [Suspect]
     Active Substance: LORATADINE
     Indication: NASOPHARYNGITIS
  3. CLARITIN [Suspect]
     Active Substance: LORATADINE
     Indication: HYPERSENSITIVITY
     Dosage: 1 DF
     Route: 048
     Dates: end: 201910

REACTIONS (2)
  - Gastrointestinal pain [Not Recovered/Not Resolved]
  - Accidental exposure to product packaging [None]

NARRATIVE: CASE EVENT DATE: 201910
